FAERS Safety Report 17442212 (Version 9)
Quarter: 2021Q1

REPORT INFORMATION
  Report Type: Spontaneous
  Country: US (occurrence: US)
  Receive Date: 20200220
  Receipt Date: 20210311
  Transmission Date: 20210419
  Serious: Yes (Other)
  Sender: FDA-Public Use
  Company Number: NVSC2020US042618

PATIENT
  Age: 81 Year
  Sex: Male

DRUGS (2)
  1. BEOVU [Suspect]
     Active Substance: BROLUCIZUMAB-DBLL
     Indication: NEOVASCULAR AGE-RELATED MACULAR DEGENERATION
     Dosage: 6 MG, UNKNOWN
     Route: 065
     Dates: start: 20200123
  2. BEOVU [Suspect]
     Active Substance: BROLUCIZUMAB-DBLL
     Dosage: 6 MG, UNKNOWN
     Route: 047
     Dates: start: 20200206, end: 20200214

REACTIONS (7)
  - Endophthalmitis [Unknown]
  - Eye inflammation [Unknown]
  - Hypopyon [Not Recovered/Not Resolved]
  - Eye pain [Not Recovered/Not Resolved]
  - Vitritis [Not Recovered/Not Resolved]
  - Blindness transient [Recovering/Resolving]
  - Corneal oedema [Not Recovered/Not Resolved]

NARRATIVE: CASE EVENT DATE: 20200126
